FAERS Safety Report 4310871-5 (Version None)
Quarter: 2004Q1

REPORT INFORMATION
  Report Type: 
  Country: None (occurrence: None)
  Receive Date: 20040304
  Receipt Date: 20040116
  Transmission Date: 20041129
  Serious: Yes (Hospitalization)
  Sender: FDA-Public Use
  Company Number: 200410212FR

PATIENT
  Age: 79 Year
  Sex: Female

DRUGS (6)
  1. TAXOTERE [Suspect]
     Indication: BREAST CANCER
     Route: 042
     Dates: start: 20030516, end: 20030516
  2. DIFFU K [Concomitant]
  3. MAXILASE [Concomitant]
  4. NITROGLYCERIN [Concomitant]
  5. MEDROL [Concomitant]
     Indication: PROPHYLAXIS
     Dates: start: 20030516, end: 20030517
  6. UMULINE [Concomitant]

REACTIONS (6)
  - AMNESIA [None]
  - CONFUSIONAL STATE [None]
  - GAMMA-GLUTAMYLTRANSFERASE INCREASED [None]
  - INFLAMMATORY CARCINOMA OF THE BREAST [None]
  - MALIGNANT NEOPLASM PROGRESSION [None]
  - MALNUTRITION [None]
